FAERS Safety Report 8145123-9 (Version None)
Quarter: 2012Q1

REPORT INFORMATION
  Report Type: 
  Country: None (occurrence: None)
  Receive Date: 20120217
  Receipt Date: 20120214
  Transmission Date: 20120608
  Serious: Yes (Other)
  Sender: FDA-Public Use
  Company Number: PHHY2012PA013245

PATIENT
  Age: 68 Year
  Sex: Female

DRUGS (6)
  1. ZOLEDRONIC ACID (RECLAST) [Suspect]
     Indication: OSTEOPOROSIS
     Dosage: 5 MG, UNK
     Route: 042
  2. BUSCAPINA [Concomitant]
     Dosage: UNK UKN, UNK
  3. CALCIUM [Concomitant]
     Dosage: UNK UKN, UNK
  4. ANTIALLERGIC AGENTS, EXCL CORTICOSTEROIDS [Concomitant]
     Dosage: UNK UKN, UNK
  5. VITAMINS NOS [Concomitant]
     Dosage: UNK UKN, UNK
  6. PROTON PUMP INHIBITORS [Concomitant]
     Dosage: UNK UKN, UNK

REACTIONS (3)
  - GASTRIC POLYPS [None]
  - FOOD INTOLERANCE [None]
  - ABDOMINAL PAIN [None]
